FAERS Safety Report 21693619 (Version 1)
Quarter: 2022Q4

REPORT INFORMATION
  Report Type: Spontaneous
  Country: RU (occurrence: RU)
  Receive Date: 20221207
  Receipt Date: 20221207
  Transmission Date: 20230113
  Serious: Yes (Other)
  Sender: FDA-Public Use
  Company Number: RU-002147023-NVSC2022RU282734

PATIENT

DRUGS (2)
  1. SIPONIMOD [Suspect]
     Active Substance: SIPONIMOD
     Indication: Product used for unknown indication
     Dosage: 2 MG
     Route: 065
     Dates: start: 202204
  2. SIPONIMOD [Suspect]
     Active Substance: SIPONIMOD
     Dosage: 1 MG
     Route: 065

REACTIONS (1)
  - Drug-induced liver injury [Unknown]
